FAERS Safety Report 21439725 (Version 2)
Quarter: 2022Q4

REPORT INFORMATION
  Report Type: Spontaneous
  Country: US (occurrence: US)
  Receive Date: 20221011
  Receipt Date: 20221018
  Transmission Date: 20230113
  Serious: No
  Sender: FDA-Public Use
  Company Number: US-PFIZER INC-202201216568

PATIENT
  Age: 51 Year
  Sex: Female
  Weight: 104.33 kg

DRUGS (1)
  1. PAXLOVID [Suspect]
     Active Substance: NIRMATRELVIR\RITONAVIR
     Indication: COVID-19 treatment
     Dosage: 6 DF, DAILY (TAKE IT 3 TABLETS AT THE SAME TIME IN THE MORNING AND 3 TABLETS IN THE EVENING)
     Dates: start: 20221003

REACTIONS (2)
  - Therapeutic response unexpected [Unknown]
  - Blood glucose decreased [Unknown]
